FAERS Safety Report 16155395 (Version 3)
Quarter: 2019Q2

REPORT INFORMATION
  Report Type: Spontaneous
  Country: GB (occurrence: GB)
  Receive Date: 20190403
  Receipt Date: 20190606
  Transmission Date: 20190711
  Serious: Yes (Hospitalization)
  Sender: FDA-Public Use
  Company Number: GB-BIOGEN-2019BI00718697

PATIENT
  Sex: Male

DRUGS (3)
  1. INSULIN [Concomitant]
     Active Substance: INSULIN NOS
     Indication: PRODUCT USED FOR UNKNOWN INDICATION
     Dosage: IN THE MORNING (1/2)
     Route: 065
  2. PLEGRIDY [Suspect]
     Active Substance: PEGINTERFERON BETA-1A
     Indication: MULTIPLE SCLEROSIS
     Dosage: 125MCG / 0.5ML
     Route: 058
     Dates: start: 20171024
  3. INSULIN [Concomitant]
     Active Substance: INSULIN NOS
     Dosage: IN THE EVENING (2/2)
     Route: 065

REACTIONS (3)
  - Balance disorder [Unknown]
  - Multiple sclerosis [Unknown]
  - Malaise [Unknown]
